FAERS Safety Report 9228061 (Version 2)
Quarter: 2013Q2

REPORT INFORMATION
  Report Type: Spontaneous
  Country: BR (occurrence: BR)
  Receive Date: 20130412
  Receipt Date: 20130424
  Transmission Date: 20140414
  Serious: Yes (Other)
  Sender: FDA-Public Use
  Company Number: BR-AMGEN-BRASP2012071614

PATIENT
  Age: 34 Year
  Sex: Male
  Weight: 68 kg

DRUGS (8)
  1. ENBREL [Suspect]
     Indication: RHEUMATOID ARTHRITIS
     Dosage: 50 MG, WEEKLY
     Route: 058
     Dates: start: 201209, end: 20130329
  2. ENBREL [Suspect]
     Dosage: 25 MG, 2X/WEEK
     Route: 058
     Dates: start: 201210
  3. ENBREL [Suspect]
     Dosage: UNK
  4. ENBREL [Suspect]
     Dosage: UNK
  5. ENBREL [Suspect]
     Dosage: UNK
  6. ENBREL [Suspect]
     Dosage: UNK
  7. ENBREL [Suspect]
     Dosage: UNK
  8. AZULFIN [Concomitant]
     Indication: COLITIS
     Dosage: UNKNOWN,  2X/DAY
     Dates: start: 2011

REACTIONS (5)
  - Pain [Unknown]
  - Colitis [Unknown]
  - Uveitis [Unknown]
  - Drug ineffective [Unknown]
  - Dysphonia [Unknown]
